FAERS Safety Report 7348893-2 (Version None)
Quarter: 2011Q1

REPORT INFORMATION
  Report Type: 
  Country: None (occurrence: None)
  Receive Date: 20110225
  Receipt Date: 20101220
  Transmission Date: 20110831
  Serious: Yes (Other)
  Sender: FDA-Public Use
  Company Number: 320491

PATIENT
  Age: 67 Year
  Sex: Male
  Weight: 73 kg

DRUGS (5)
  1. CRESTOR [Concomitant]
  2. VICTOZA [Suspect]
     Indication: TYPE 2 DIABETES MELLITUS
     Dosage: 0.6 MG, QD, SUBCUTANEOUS, 1.8 MG, QD
     Route: 058
     Dates: start: 20101117, end: 20101124
  3. VICTOZA [Suspect]
     Indication: TYPE 2 DIABETES MELLITUS
     Dosage: 0.6 MG, QD, SUBCUTANEOUS, 1.8 MG, QD
     Route: 058
     Dates: start: 20101125
  4. METFORMIN (METFORMIN) [Concomitant]
  5. GLIPIZIDE [Concomitant]

REACTIONS (1)
  - PANCREATITIS ACUTE [None]
